FAERS Safety Report 16740745 (Version 2)
Quarter: 2019Q3

REPORT INFORMATION
  Report Type: Spontaneous
  Country: US (occurrence: US)
  Receive Date: 20190826
  Receipt Date: 20190830
  Transmission Date: 20191005
  Serious: No
  Sender: FDA-Public Use
  Company Number: US-PFIZER INC-2019361690

PATIENT
  Age: 69 Year
  Sex: Female
  Weight: 76.64 kg

DRUGS (1)
  1. CIPROFLOXACIN. [Suspect]
     Active Substance: CIPROFLOXACIN
     Dosage: UNK

REACTIONS (6)
  - Oral mucosal blistering [Unknown]
  - Lip blister [Unknown]
  - Drug hypersensitivity [Unknown]
  - Tongue blistering [Unknown]
  - Swollen tongue [Unknown]
  - Lip swelling [Unknown]
